FAERS Safety Report 8880765 (Version 1)
Quarter: 2012Q4

REPORT INFORMATION
  Report Type: 
  Country: US (occurrence: US)
  Receive Date: 20121101
  Receipt Date: 20121101
  Transmission Date: 20130627
  Serious: Yes (Hospitalization)
  Sender: FDA-Public Use
  Company Number: US-BAYER-2012-113583

PATIENT
  Age: 39 Year
  Sex: Female

DRUGS (11)
  1. YASMIN [Suspect]
  2. EFFEXOR XR [Concomitant]
     Dosage: 150 mg, UNK
  3. VERAPAMIL [Concomitant]
     Dosage: 240 mg, UNK
  4. HYDROCHLOROTHIAZIDE [Concomitant]
     Dosage: 12.5 mg, UNK
  5. LEXAPRO [Concomitant]
     Dosage: 10 mg, UNK
  6. TRAMADOL HYDROCHLORIDE [Concomitant]
     Dosage: 50 mg, UNK
  7. POTASSIUM CHLORIDE [Concomitant]
  8. GLYBURIDE [Concomitant]
     Dosage: 5 mg, UNK
  9. METFORMIN [Concomitant]
     Dosage: 500 mg, UNK
  10. TARKA [Concomitant]
     Dosage: 2-240
  11. AZITHROMYCIN [Concomitant]
     Dosage: 500 mg, UNK

REACTIONS (2)
  - Pulmonary embolism [None]
  - Deep vein thrombosis [None]
